FAERS Safety Report 6768162-9 (Version None)
Quarter: 2010Q2

REPORT INFORMATION
  Report Type: 
  Country: None (occurrence: None)
  Receive Date: 20100610
  Receipt Date: 20100526
  Transmission Date: 20101027
  Serious: Yes (Hospitalization)
  Sender: FDA-Public Use
  Company Number: 2010002116

PATIENT
  Age: 64 Year
  Sex: Female

DRUGS (1)
  1. ERLOTINIB (ERLOTINIB) (TABLET) (ERLOTINIB) [Suspect]
     Indication: NON-SMALL CELL LUNG CANCER
     Dosage: QD, ORAL
     Route: 048
     Dates: start: 20100426

REACTIONS (2)
  - CONVULSION [None]
  - FALL [None]
